FAERS Safety Report 6986348-5 (Version None)
Quarter: 2010Q3

REPORT INFORMATION
  Report Type: 
  Country: None (occurrence: None)
  Receive Date: 20100915
  Receipt Date: 20090622
  Transmission Date: 20110219
  Serious: No
  Sender: FDA-Public Use
  Company Number: US-WYE-H09892209

PATIENT
  Sex: Female
  Weight: 74 kg

DRUGS (6)
  1. PRISTIQ [Suspect]
     Indication: DEPRESSION
     Route: 048
     Dates: start: 20090616
  2. AMITIZA [Concomitant]
  3. LUNESTA [Concomitant]
  4. MILK OF MAGNESIA TAB [Concomitant]
  5. LYRICA [Concomitant]
  6. REQUIP [Concomitant]

REACTIONS (3)
  - CHEST DISCOMFORT [None]
  - ERUCTATION [None]
  - HYPERHIDROSIS [None]
